FAERS Safety Report 11989257 (Version 1)
Quarter: 2016Q1

REPORT INFORMATION
  Report Type: Spontaneous
  Country: FR (occurrence: FR)
  Receive Date: 20160202
  Receipt Date: 20160202
  Transmission Date: 20160526
  Serious: Yes (Disabling)
  Sender: FDA-Public Use
  Company Number: FR-TEVA-590154ISR

PATIENT
  Age: 70 Year
  Sex: Female
  Weight: 52 kg

DRUGS (9)
  1. RISEDRONATE TEVA 35 MG [Suspect]
     Active Substance: RISEDRONATE SODIUM
     Route: 048
     Dates: start: 20140908, end: 20140908
  2. RISEDRONATE TEVA 35 MG [Suspect]
     Active Substance: RISEDRONATE SODIUM
     Route: 048
     Dates: start: 20140402, end: 20140818
  3. DAFLON [Concomitant]
     Active Substance: DIOSMIN\HESPERIDIN
     Indication: CARDIOVASCULAR DISORDER
  4. PIASCLEDINE [Concomitant]
     Active Substance: AVOCADO OIL\SOYBEAN OIL
     Indication: OSTEOARTHRITIS
  5. CACIT 1000 MG [Concomitant]
     Dosage: 1 DOSAGE FORMS DAILY; STARTED SEVERAL YEARS EARLIER
  6. CHONDROSULF [Concomitant]
     Active Substance: CHONDROITIN SULFATE (CHICKEN)
     Dosage: 3 DOSAGE FORMS DAILY; STARTED SEVERAL YEARS EARLIER
     Route: 048
  7. RISEDRONATE TEVA 35 MG [Suspect]
     Active Substance: RISEDRONATE SODIUM
     Dates: end: 201508
  8. RISEDRONSTE RATIOPHARM 35 MG [Suspect]
     Active Substance: RISEDRONATE SODIUM
     Route: 048
     Dates: start: 20120511, end: 20120611
  9. SUMATRIPTAN TEVA 50 MG FILMDRAGERAD TABLETT [Concomitant]
     Active Substance: SUMATRIPTAN
     Dosage: STARTED SEVERAL YEARS EARLIER
     Route: 048

REACTIONS (4)
  - Gingivitis [Recovered/Resolved with Sequelae]
  - Breath odour [Not Recovered/Not Resolved]
  - Pain in jaw [Unknown]
  - Gingival swelling [Unknown]

NARRATIVE: CASE EVENT DATE: 20150401
